FAERS Safety Report 7933732-9 (Version None)
Quarter: 2011Q4

REPORT INFORMATION
  Report Type: 
  Country: None (occurrence: None)
  Receive Date: 20111118
  Receipt Date: 20111108
  Transmission Date: 20120403
  Serious: Yes (Other)
  Sender: FDA-Public Use
  Company Number: 1106715

PATIENT
  Age: 70 Year
  Sex: Female

DRUGS (5)
  1. CYCLOPHOSPHAMIDE [Concomitant]
  2. METHOTREXATE [Suspect]
     Indication: CENTRAL NERVOUS SYSTEM LYMPHOMA
     Dosage: 400 MG TWICE-WEEKLY, INTRAOCULAR ; WEEKLY INTRAOCULAR ; MONTHLY INTRAOCULAR
     Route: 031
  3. METHOTREXATE [Suspect]
     Indication: CENTRAL NERVOUS SYSTEM LYMPHOMA
     Dosage: 400 MG TWICE-WEEKLY, INTRAOCULAR ; WEEKLY INTRAOCULAR ; MONTHLY INTRAOCULAR
     Route: 031
  4. METHOTREXATE [Suspect]
     Indication: CENTRAL NERVOUS SYSTEM LYMPHOMA
     Dosage: 400 MG TWICE-WEEKLY, INTRAOCULAR ; WEEKLY INTRAOCULAR ; MONTHLY INTRAOCULAR
     Route: 031
  5. ETOPOSIDE [Concomitant]

REACTIONS (4)
  - CATARACT [None]
  - DISEASE PROGRESSION [None]
  - RETINAL DISORDER [None]
  - MACULOPATHY [None]
